FAERS Safety Report 12169797 (Version 2)
Quarter: 2016Q2

REPORT INFORMATION
  Report Type: Spontaneous
  Country: US (occurrence: US)
  Receive Date: 20160310
  Receipt Date: 20160411
  Transmission Date: 20160815
  Serious: Yes (Life-Threatening, Hospitalization, Disabling)
  Sender: FDA-Public Use
  Company Number: US-009507513-1603USA001309

PATIENT
  Age: 77 Year
  Sex: Male

DRUGS (9)
  1. LATISSE [Concomitant]
     Active Substance: BIMATOPROST
  2. PRILOSEC [Concomitant]
     Active Substance: OMEPRAZOLE MAGNESIUM
     Route: 048
  3. PLAVIX [Concomitant]
     Active Substance: CLOPIDOGREL BISULFATE
  4. ZONTIVITY [Suspect]
     Active Substance: VORAPAXAR SULFATE
     Indication: ISCHAEMIC HEART DISEASE PROPHYLAXIS
     Dosage: 2.08 MG, UNK
     Route: 048
  5. NIACIN. [Concomitant]
     Active Substance: NIACIN
  6. PRINIVIL [Concomitant]
     Active Substance: LISINOPRIL
     Route: 048
  7. HYDROCHLOROTHIAZIDE. [Concomitant]
     Active Substance: HYDROCHLOROTHIAZIDE
  8. ATENOLOL. [Concomitant]
     Active Substance: ATENOLOL
  9. VYTORIN [Concomitant]
     Active Substance: EZETIMIBE\SIMVASTATIN
     Route: 048

REACTIONS (4)
  - Thrombosis [Unknown]
  - Drug dose omission [Unknown]
  - Blood fibrinogen decreased [Unknown]
  - Epistaxis [Unknown]

NARRATIVE: CASE EVENT DATE: 20160228
